FAERS Safety Report 10065446 (Version 1)
Quarter: 2014Q2

REPORT INFORMATION
  Report Type: Spontaneous
  Country: US (occurrence: None)
  Receive Date: 20140401
  Receipt Date: 20140401
  Transmission Date: 20141212
  Serious: Yes (Other)
  Sender: FDA-Public Use
  Company Number: PHEH2013US018883

PATIENT
  Age: 83 Year
  Sex: Male

DRUGS (9)
  1. EXELON PATCH [Suspect]
     Route: 062
     Dates: start: 20120921
  2. FLOMAX (TAMSULOSIN HYDROCHLORIDE) [Concomitant]
  3. PROZAC (FLUOXETINE HYDROCHLORIDE) [Concomitant]
  4. DEPLIN (CALCIUM LEVOMEFOLATE) [Concomitant]
  5. SYNTHROID (LEVOTHYROXINE SODIUM) [Concomitant]
  6. ASA (ACETYLSALICYLIC ACID) [Concomitant]
  7. PRESERVISION (ASCORBIC ACID, BETACAROTENE, CUPRIC OXIDE, TOCOPHERYL ACETATE, ZINC OXIDE) [Concomitant]
  8. GLUCOSAMINE (GLUCOSAMINE) [Concomitant]
  9. DIGOXIN (DIGOXIN) [Concomitant]

REACTIONS (4)
  - Hip fracture [None]
  - Application site rash [None]
  - Application site erythema [None]
  - Hyperhidrosis [None]
